FAERS Safety Report 14735278 (Version 1)
Quarter: 2018Q2

REPORT INFORMATION
  Report Type: Spontaneous
  Country: US (occurrence: US)
  Receive Date: 20180409
  Receipt Date: 20180409
  Transmission Date: 20180711
  Serious: Yes (Hospitalization)
  Sender: FDA-Public Use
  Company Number: US-JNJFOC-20180406624

PATIENT
  Age: 71 Year
  Sex: Male
  Weight: 112.49 kg

DRUGS (1)
  1. INVOKANA [Suspect]
     Active Substance: CANAGLIFLOZIN
     Indication: PRODUCT USED FOR UNKNOWN INDICATION
     Route: 048
     Dates: start: 20150924

REACTIONS (3)
  - Gangrene [Unknown]
  - Peripheral ischaemia [Unknown]
  - Amputation [Unknown]

NARRATIVE: CASE EVENT DATE: 201610
